FAERS Safety Report 5225677-2 (Version None)
Quarter: 2007Q1

REPORT INFORMATION
  Report Type: 
  Country: None (occurrence: None)
  Receive Date: 20061201
  Receipt Date: 20061025
  Transmission Date: 20070707
  Serious: No
  Sender: FDA-Public Use
  Company Number: US200610004715

PATIENT
  Age: 57 Year
  Sex: Female

DRUGS (10)
  1. CYMBALTA [Suspect]
     Indication: DEPRESSION
     Dosage: 60 MG
     Dates: start: 20060901
  2. CELLCEPT /USA/(MYCOPHENOLATE MOFETIL) [Concomitant]
  3. ACTOS /CAN/(PIOGLITAZONE HYDROCHLORIDE) [Concomitant]
  4. SYNTHROID [Concomitant]
  5. GEODON [Concomitant]
  6. PREDNISONE TAB [Concomitant]
  7. ZETIA [Concomitant]
  8. EVISTA [Concomitant]
  9. LITHIUM CARBONATE [Concomitant]
  10. LANTUS [Concomitant]

REACTIONS (1)
  - PAROSMIA [None]
